FAERS Safety Report 8307411-2 (Version None)
Quarter: 2012Q2

REPORT INFORMATION
  Report Type: 
  Country: None (occurrence: None)
  Receive Date: 20120424
  Receipt Date: 20120417
  Transmission Date: 20120825
  Serious: Yes (Hospitalization, Other)
  Sender: FDA-Public Use
  Company Number: GB-PFIZER INC-2012094583

PATIENT
  Age: 42 Year
  Sex: Female
  Weight: 42 kg

DRUGS (14)
  1. ACETAMINOPHEN [Suspect]
     Route: 048
  2. MESALAZINE [Concomitant]
     Indication: CROHN'S DISEASE
     Route: 048
     Dates: end: 20111013
  3. SALBUTAMOL [Concomitant]
     Dosage: NEBULES
  4. MORPHINE [Concomitant]
     Indication: ANALGESIC THERAPY
     Route: 042
  5. MEROPENEM [Concomitant]
     Indication: ABDOMINAL SEPSIS
     Dosage: 3 MG DAILY (ALSO REPORTED AS 3 G DAILY)
     Dates: start: 20111020
  6. POTASSIUM CHLORIDE [Concomitant]
     Dosage: STAT DOSE
     Route: 048
  7. FUROSEMIDE [Concomitant]
     Dosage: STAT DOSE
     Route: 042
  8. PIPERACILLIN AND TAZOBACTAM [Suspect]
     Indication: ABDOMINAL SEPSIS
     Dosage: 13.5 G DAILY
     Route: 042
     Dates: start: 20111014, end: 20111020
  9. OMEPRAZOLE [Concomitant]
     Indication: PROPHYLAXIS
     Dosage: 40 MG DAILY
     Route: 042
     Dates: start: 20111014, end: 20111018
  10. ACETAMINOPHEN [Suspect]
     Indication: POSTOPERATIVE ANALGESIA
     Dosage: 4 G DAILY
     Route: 042
     Dates: start: 20111014, end: 20111019
  11. TINZAPARIN SODIUM [Concomitant]
     Indication: THROMBOSIS PROPHYLAXIS
     Dosage: 1 DOSE FORM OF 3500 UNITS DAILY
     Route: 058
     Dates: start: 20111014, end: 20111111
  12. ACETAMINOPHEN [Suspect]
     Dosage: 600 MG EVERY 6 HOURS
     Route: 042
     Dates: start: 20111024
  13. METRONIDAZOLE [Concomitant]
     Indication: ABDOMINAL SEPSIS
     Dosage: 1.5 G DAILY
     Route: 042
     Dates: start: 20111014, end: 20111021
  14. POTASSIUM CHLORIDE [Concomitant]
     Dosage: STAT DOSE
     Route: 042

REACTIONS (3)
  - OVERDOSE [None]
  - LIVER FUNCTION TEST ABNORMAL [None]
  - COAGULOPATHY [None]
